FAERS Safety Report 6249979-6 (Version None)
Quarter: 2009Q2

REPORT INFORMATION
  Report Type: 
  Country: None (occurrence: None)
  Receive Date: 20090625
  Receipt Date: 20090618
  Transmission Date: 20091009
  Serious: Yes (Death, Hospitalization, Other)
  Sender: FDA-Public Use
  Company Number: 2009US002476

PATIENT
  Age: 45 Year
  Sex: Male

DRUGS (6)
  1. PROGRAF [Suspect]
     Indication: LIVER TRANSPLANT
     Dates: start: 20070701
  2. MYCOPHENOLATE MOFETIL [Suspect]
     Indication: LIVER TRANSPLANT
     Dates: start: 20070701
  3. CORTICOSTEROIDS() [Suspect]
     Indication: LIVER TRANSPLANT
     Dates: start: 20070701
  4. PIPERACILLIN W/TAZOBACTAM (PIPERACILLIN, TAZOBACTAM) [Concomitant]
  5. LINEZOLID [Concomitant]
  6. TRIMETHOPRIM SULFMETHOXAZOLE (SULFAMETHOXAZOLE, TRIMETHOPRIM) [Concomitant]

REACTIONS (34)
  - ABDOMINAL CAVITY DRAINAGE [None]
  - ABDOMINAL PAIN [None]
  - ABSCESS [None]
  - ASCITES [None]
  - BACTERAEMIA [None]
  - BLOOD CULTURE POSITIVE [None]
  - BRONCHOPULMONARY ASPERGILLOSIS [None]
  - CANDIDIASIS [None]
  - COAGULOPATHY [None]
  - CROSS INFECTION [None]
  - CULTURE POSITIVE [None]
  - CULTURE URINE POSITIVE [None]
  - CYTOMEGALOVIRUS HEPATITIS [None]
  - DRUG TOXICITY [None]
  - ENTEROCOCCAL BACTERAEMIA [None]
  - ENTEROCOCCAL INFECTION [None]
  - GASTROINTESTINAL HAEMORRHAGE [None]
  - GENERAL PHYSICAL HEALTH DETERIORATION [None]
  - GRAFT COMPLICATION [None]
  - HEPATIC ARTERY THROMBOSIS [None]
  - HYPOTENSION [None]
  - KLEBSIELLA BACTERAEMIA [None]
  - KLEBSIELLA INFECTION [None]
  - LIVER ABSCESS [None]
  - MULTI-ORGAN FAILURE [None]
  - NECROSIS [None]
  - PANCYTOPENIA [None]
  - PERITONITIS [None]
  - PNEUMONIA [None]
  - POST PROCEDURAL BILE LEAK [None]
  - RENAL FAILURE ACUTE [None]
  - SEPSIS [None]
  - SEPTIC SHOCK [None]
  - STENOTROPHOMONAS INFECTION [None]
